FAERS Safety Report 18687662 (Version 1)
Quarter: 2020Q4

REPORT INFORMATION
  Report Type: Spontaneous
  Country: BR (occurrence: BR)
  Receive Date: 20201231
  Receipt Date: 20201231
  Transmission Date: 20210114
  Serious: Yes (Death, Hospitalization, Other)
  Sender: FDA-Public Use
  Company Number: BR-LUPIN PHARMACEUTICALS INC.-2020-11144

PATIENT
  Sex: Male

DRUGS (23)
  1. CEFTRIAXONE. [Concomitant]
     Active Substance: CEFTRIAXONE
     Indication: ANTIBIOTIC THERAPY
     Dosage: 100 MILLIGRAM
     Route: 065
  2. MEROPENEM. [Concomitant]
     Active Substance: MEROPENEM
     Indication: ANTIBIOTIC THERAPY
     Dosage: 40 MILLIGRAM
     Route: 065
  3. CIPROFLOXACIN. [Concomitant]
     Active Substance: CIPROFLOXACIN
     Dosage: 40 MILLIGRAM
     Route: 048
  4. OXACILLIN [Concomitant]
     Active Substance: OXACILLIN SODIUM
     Indication: ANTIBIOTIC THERAPY
     Dosage: 200 MILLIGRAM
     Route: 065
  5. TOBRAMYCIN. [Concomitant]
     Active Substance: TOBRAMYCIN
     Dosage: 10 MILLIGRAM
     Route: 065
  6. LINEZOLID. [Concomitant]
     Active Substance: LINEZOLID
     Indication: ANTIBIOTIC THERAPY
     Dosage: 30 MILLIGRAM
     Route: 048
  7. RIFAMPICIN [Concomitant]
     Active Substance: RIFAMPIN
     Indication: ANTIBIOTIC THERAPY
     Dosage: 10 MILLIGRAM
     Route: 048
  8. CEFTAZIDIME. [Concomitant]
     Active Substance: CEFTAZIDIME
     Indication: ANTIBIOTIC THERAPY
     Dosage: 150 MILLIGRAM
     Route: 065
  9. CIPROFLOXACIN. [Concomitant]
     Active Substance: CIPROFLOXACIN
     Indication: ANTIBIOTIC THERAPY
     Dosage: UNK
     Route: 065
  10. GENTAMICIN. [Concomitant]
     Active Substance: GENTAMICIN
     Indication: ANTIBIOTIC THERAPY
     Dosage: UNK
     Route: 065
  11. AMIKACIN. [Concomitant]
     Active Substance: AMIKACIN
     Indication: ANTIBIOTIC THERAPY
     Dosage: UNK
     Route: 065
  12. AMOXICILLIN. [Concomitant]
     Active Substance: AMOXICILLIN
     Indication: ANTIBIOTIC THERAPY
     Dosage: 50 MILLIGRAM
     Route: 048
  13. VANCOMYCIN [Concomitant]
     Active Substance: VANCOMYCIN
     Indication: ANTIBIOTIC THERAPY
     Dosage: 60 MILLIGRAM
     Route: 065
  14. LINEZOLID. [Concomitant]
     Active Substance: LINEZOLID
     Dosage: UNK
     Route: 065
  15. CEPHALEXIN [CEFALEXIN] [Concomitant]
     Active Substance: CEPHALEXIN
     Indication: ANTIBIOTIC THERAPY
     Dosage: UNK
     Route: 065
  16. TOBRAMYCIN. [Concomitant]
     Active Substance: TOBRAMYCIN
     Indication: ANTIBIOTIC THERAPY
     Dosage: UNK
     Route: 065
  17. FLUCONAZOLE. [Concomitant]
     Active Substance: FLUCONAZOLE
     Indication: ANTIFUNGAL TREATMENT
     Dosage: 5 MILLIGRAM
     Route: 048
  18. AZITHROMYCIN ANHYDROUS. [Concomitant]
     Active Substance: AZITHROMYCIN ANHYDROUS
     Indication: ANTIBIOTIC THERAPY
     Dosage: UNK
     Route: 065
  19. SULFAMETHOXAZOLE AND TRIMETHOPRIM [Suspect]
     Active Substance: SULFAMETHOXAZOLE\TRIMETHOPRIM
     Dosage: 10 MILLIGRAM, QD
     Route: 048
  20. CEPHALEXIN [CEFALEXIN] [Concomitant]
     Active Substance: CEPHALEXIN
     Dosage: UNK, 50-75MG
     Route: 048
  21. SULFAMETHOXAZOLE AND TRIMETHOPRIM [Suspect]
     Active Substance: SULFAMETHOXAZOLE\TRIMETHOPRIM
     Indication: PSEUDOMONAS INFECTION
     Dosage: UNK
     Route: 065
  22. AMOXICILLIN + CLAVULANIC ACID [Concomitant]
     Active Substance: AMOXICILLIN\CLAVULANIC ACID
     Indication: ANTIBIOTIC THERAPY
     Dosage: 50 MILLIGRAM
     Route: 048
  23. CEFEPIME [Concomitant]
     Active Substance: CEFEPIME HYDROCHLORIDE
     Indication: ANTIBIOTIC THERAPY
     Dosage: 150 MILLIGRAM
     Route: 065

REACTIONS (1)
  - Pathogen resistance [Unknown]
